FAERS Safety Report 12077649 (Version 2)
Quarter: 2016Q2

REPORT INFORMATION
  Report Type: Spontaneous
  Country: US (occurrence: US)
  Receive Date: 20160215
  Receipt Date: 20160505
  Transmission Date: 20160815
  Serious: No
  Sender: FDA-Public Use
  Company Number: US-ASTRAZENECA-2016SE02706

PATIENT
  Age: 23163 Day
  Sex: Female

DRUGS (1)
  1. BYDUREON [Suspect]
     Active Substance: EXENATIDE
     Indication: TYPE 2 DIABETES MELLITUS
     Dosage: 2 MG 4 COUNT VIAL,ONCE A WEEK
     Route: 058
     Dates: start: 201511

REACTIONS (5)
  - Injection site pain [Recovered/Resolved]
  - Product quality issue [Unknown]
  - Feeling abnormal [Unknown]
  - Pruritus [Unknown]
  - Injection site extravasation [Recovered/Resolved]

NARRATIVE: CASE EVENT DATE: 20160111
